FAERS Safety Report 16379905 (Version 1)
Quarter: 2019Q2

REPORT INFORMATION
  Report Type: Spontaneous
  Country: BR (occurrence: BR)
  Receive Date: 20190531
  Receipt Date: 20190531
  Transmission Date: 20190711
  Serious: Yes (Other)
  Sender: FDA-Public Use
  Company Number: BR-ELI_LILLY_AND_COMPANY-BR201905011539

PATIENT

DRUGS (10)
  1. METFORMINA [METFORMIN] [Concomitant]
     Dosage: 850 MG, DAILY
  2. METILDOPA [Concomitant]
     Active Substance: METHYLDOPA
     Indication: BLOOD PRESSURE INCREASED
     Dosage: 100 MG, DAILY
  3. HUMALOG [Suspect]
     Active Substance: INSULIN LISPRO
     Dosage: 6 INTERNATIONAL UNIT
     Route: 064
  4. HUMALOG [Suspect]
     Active Substance: INSULIN LISPRO
     Indication: DIABETES MELLITUS
     Dosage: UNK, UNKNOWN
     Route: 064
  5. HUMALOG [Suspect]
     Active Substance: INSULIN LISPRO
     Indication: DIABETES MELLITUS
     Dosage: UNK, UNKNOWN
     Route: 064
  6. LANTUS [Concomitant]
     Active Substance: INSULIN GLARGINE
     Indication: DIABETES MELLITUS
     Dosage: 28 INTERNATIONAL UNIT, DAILY
  7. HUMALOG [Suspect]
     Active Substance: INSULIN LISPRO
     Dosage: 6 INTERNATIONAL UNIT
     Route: 064
  8. LANTUS [Concomitant]
     Active Substance: INSULIN GLARGINE
     Indication: DIABETES MELLITUS
     Dosage: 28 INTERNATIONAL UNIT, DAILY
  9. METFORMINA [METFORMIN] [Concomitant]
     Dosage: 850 MG, DAILY
  10. METILDOPA [Concomitant]
     Active Substance: METHYLDOPA
     Indication: BLOOD PRESSURE INCREASED
     Dosage: 100 MG, DAILY

REACTIONS (3)
  - Premature baby [Unknown]
  - Foetal exposure during pregnancy [Recovered/Resolved]
  - Arrhythmia [Recovering/Resolving]
